FAERS Safety Report 22009878 (Version 1)
Quarter: 2023Q1

REPORT INFORMATION
  Report Type: Other
  Country: CA (occurrence: None)
  Receive Date: 20230220
  Receipt Date: 20230220
  Transmission Date: 20230418
  Serious: No
  Sender: FDA-Public Use
  Company Number: CA-ROCHE-3289230

PATIENT
  Age: 40 Year
  Sex: Female

DRUGS (7)
  1. OCREVUS [Suspect]
     Active Substance: OCRELIZUMAB
     Indication: Relapsing-remitting multiple sclerosis
     Dosage: 300 MG AT DAY 0 AND 14, THEN 600 MG EVERY 6 MONTH
     Route: 042
     Dates: start: 20210921
  2. VITAMIN D [Concomitant]
     Active Substance: VITAMIN D NOS
  3. VITAMIN C [Concomitant]
     Active Substance: ASCORBIC ACID
  4. VITAMIN B [Concomitant]
     Active Substance: VITAMIN B
  5. MAGNESIUM [Concomitant]
     Active Substance: MAGNESIUM
  6. OMEGA 3 [Concomitant]
     Active Substance: CAPSAICIN
  7. BIRTH CONTROL PILL (UNK INGREDIENTS) [Concomitant]

REACTIONS (1)
  - Varicella [Recovered/Resolved with Sequelae]

NARRATIVE: CASE EVENT DATE: 20221001
